FAERS Safety Report 4443960-5 (Version None)
Quarter: 2004Q3

REPORT INFORMATION
  Report Type: 
  Country: None (occurrence: None)
  Receive Date: 20040729
  Receipt Date: 20030721
  Transmission Date: 20050211
  Serious: Yes (Hospitalization)
  Sender: FDA-Public Use
  Company Number: US-JNJFOC-20030705539

PATIENT
  Age: 36 Year
  Sex: Male
  Weight: 134.7183 kg

DRUGS (5)
  1. RISPERDAL [Suspect]
     Indication: DRUG USE FOR UNKNOWN INDICATION
     Dosage: 3-9 MG DAILY
     Dates: end: 20030324
  2. CLOZAPINE [Suspect]
     Indication: DRUG USE FOR UNKNOWN INDICATION
     Dosage: 25 MG, 1 IN 1 DAY
     Dates: start: 20030319
  3. COGNENTIN (BENZATROPINE MESILATE) [Concomitant]
  4. STELAZINE [Concomitant]
  5. LITHIUM CARBONATE [Concomitant]

REACTIONS (2)
  - NEUROLEPTIC MALIGNANT SYNDROME [None]
  - PSYCHOTIC DISORDER [None]
